FAERS Safety Report 9110259 (Version 2)
Quarter: 2013Q2

REPORT INFORMATION
  Report Type: Report from Study
  Country: JP (occurrence: JP)
  Receive Date: 20130222
  Receipt Date: 20130410
  Transmission Date: 20140414
  Serious: Yes (Other)
  Sender: FDA-Public Use
  Company Number: JP-009507513-1302JPN006367

PATIENT
  Sex: Male
  Weight: 2.33 kg

DRUGS (6)
  1. DIAZOXIDE CAPSULES 25 MG?MSD? [Suspect]
     Indication: HYPOGLYCAEMIA
     Dosage: 6 MG, BID
     Route: 048
     Dates: start: 20120217, end: 20120217
  2. DIAZOXIDE CAPSULES 25 MG?MSD? [Suspect]
     Dosage: 12 MG, BID
     Route: 048
     Dates: start: 20120218, end: 20120224
  3. DIAZOXIDE CAPSULES 25 MG?MSD? [Suspect]
     Dosage: 9 MG, BID
     Route: 048
     Dates: start: 20120225, end: 20120228
  4. DIAZOXIDE CAPSULES 25 MG?MSD? [Suspect]
     Dosage: 6 MG, BID
     Route: 048
     Dates: start: 20120229, end: 20120302
  5. DIAZOXIDE CAPSULES 25 MG?MSD? [Suspect]
     Dosage: 4 MG, BID
     Route: 048
     Dates: start: 20120303, end: 20120321
  6. HYDROCORTONE [Concomitant]
     Indication: HYPOGLYCAEMIA
     Dosage: DIVIDED DOSE FREQUENCY UNKNOWN
     Route: 042
     Dates: start: 20120216, end: 20120217

REACTIONS (1)
  - Cardiac failure [Recovered/Resolved]
